FAERS Safety Report 21233504 (Version 2)
Quarter: 2022Q4

REPORT INFORMATION
  Report Type: Spontaneous
  Country: US (occurrence: US)
  Receive Date: 20220819
  Receipt Date: 20221122
  Transmission Date: 20230112
  Serious: Yes (Hospitalization)
  Sender: FDA-Public Use
  Company Number: US-BIOVITRUM-2022US09428

PATIENT
  Age: 13 Year
  Sex: Female

DRUGS (5)
  1. KINERET [Suspect]
     Active Substance: ANAKINRA
     Indication: Autoinflammatory disease
     Dates: start: 20220715
  2. KINERET [Suspect]
     Active Substance: ANAKINRA
     Indication: Haemophagocytic lymphohistiocytosis
     Dates: start: 20220627
  3. KINERET [Suspect]
     Active Substance: ANAKINRA
     Dates: start: 202207
  4. OMEPRAZOLE [Concomitant]
     Active Substance: OMEPRAZOLE
  5. PREDNISONE [Concomitant]
     Active Substance: PREDNISONE

REACTIONS (15)
  - White blood cell count abnormal [Unknown]
  - Haemoglobin abnormal [Unknown]
  - Platelet count abnormal [Unknown]
  - Contusion [Unknown]
  - Cough [Unknown]
  - Productive cough [Unknown]
  - Influenza [Unknown]
  - COVID-19 [Unknown]
  - Sinusitis [Unknown]
  - Injection site erythema [Unknown]
  - Injection site pruritus [Unknown]
  - Injection site urticaria [Unknown]
  - Rash [Unknown]
  - Injection site swelling [Recovered/Resolved]
  - Off label use [Not Recovered/Not Resolved]

NARRATIVE: CASE EVENT DATE: 20220627
